FAERS Safety Report 24927639 (Version 6)
Quarter: 2025Q4

REPORT INFORMATION
  Report Type: Spontaneous
  Country: JP (occurrence: JP)
  Receive Date: 20250205
  Receipt Date: 20251211
  Transmission Date: 20260117
  Serious: Yes (Hospitalization, Other)
  Sender: ASTELLAS
  Company Number: JP-ASTELLAS-2024-AER-018179

PATIENT
  Age: 77 Year
  Sex: Male
  Weight: 53 kg

DRUGS (11)
  1. VYLOY [Suspect]
     Active Substance: ZOLBETUXIMAB-CLZB
     Indication: Gastric cancer
     Route: 042
     Dates: start: 20241023, end: 20241023
  2. VYLOY [Suspect]
     Active Substance: ZOLBETUXIMAB-CLZB
     Route: 042
     Dates: start: 20241113, end: 20241113
  3. VYLOY [Suspect]
     Active Substance: ZOLBETUXIMAB-CLZB
     Route: 042
     Dates: start: 20241204, end: 20241204
  4. VYLOY [Suspect]
     Active Substance: ZOLBETUXIMAB-CLZB
     Route: 042
     Dates: start: 20250326, end: 20250604
  5. VYLOY [Suspect]
     Active Substance: ZOLBETUXIMAB-CLZB
     Dosage: 600 MG/M2
     Route: 042
     Dates: start: 20250115, end: 20250305
  6. CAPECITABINE [Suspect]
     Active Substance: CAPECITABINE
     Indication: Product used for unknown indication
     Route: 065
     Dates: start: 20241002
  7. CAPECITABINE [Suspect]
     Active Substance: CAPECITABINE
     Dosage: DOSE WAS REDUCED BY ONE STEP
     Route: 065
     Dates: start: 20241113, end: 20241204
  8. CAPECITABINE [Suspect]
     Active Substance: CAPECITABINE
     Dosage: DOSE REDUCED
     Route: 065
     Dates: start: 20241204
  9. OXALIPLATIN [Suspect]
     Active Substance: OXALIPLATIN
     Indication: Product used for unknown indication
     Dosage: DOSE WAS REDUCED TO 80%
     Route: 065
     Dates: start: 20241023
  10. OXALIPLATIN [Suspect]
     Active Substance: OXALIPLATIN
     Route: 065
     Dates: start: 20241002
  11. Florid Gel [Concomitant]
     Indication: Oral fungal infection
     Route: 065
     Dates: start: 20241029

REACTIONS (11)
  - Cognitive disorder [Not Recovered/Not Resolved]
  - Hepatic function abnormal [Recovered/Resolved]
  - Neutrophil count decreased [Recovered/Resolved]
  - Palmar-plantar erythrodysaesthesia syndrome [Recovering/Resolving]
  - Decreased appetite [Recovered/Resolved]
  - COVID-19 [Recovered/Resolved]
  - Neuropathy peripheral [Recovered/Resolved]
  - Oral fungal infection [Recovered/Resolved]
  - Hypoaesthesia oral [Recovered/Resolved]
  - Eye discharge [Recovered/Resolved]
  - Inappropriate schedule of product administration [Unknown]

NARRATIVE: CASE EVENT DATE: 20241023
